FAERS Safety Report 5732123-9 (Version None)
Quarter: 2008Q2

REPORT INFORMATION
  Report Type: 
  Country: None (occurrence: None)
  Receive Date: 20080508
  Receipt Date: 20080429
  Transmission Date: 20081010
  Serious: Yes (Other)
  Sender: FDA-Public Use
  Company Number: US-AMGEN-KDL268424

PATIENT
  Sex: Male
  Weight: 92.6 kg

DRUGS (17)
  1. ARANESP [Suspect]
     Indication: ANAEMIA OF MALIGNANT DISEASE
     Route: 058
     Dates: start: 20071025, end: 20080219
  2. ATENOLOL [Concomitant]
  3. ALTACE [Concomitant]
  4. LIPITOR [Concomitant]
  5. PRILOSEC [Concomitant]
  6. INSULIN [Concomitant]
  7. CIALIS [Concomitant]
  8. ASPIRIN [Concomitant]
  9. PREDNISONE TAB [Concomitant]
  10. FOLIC ACID [Concomitant]
  11. ACYCLOVIR [Concomitant]
  12. RITUXAN [Concomitant]
  13. CYTOXAN [Concomitant]
  14. DECADRON [Concomitant]
  15. BENADRYL [Concomitant]
  16. PENTOSTATIN [Concomitant]
  17. RITUXAN [Concomitant]

REACTIONS (2)
  - ANAEMIA [None]
  - APLASIA PURE RED CELL [None]
